FAERS Safety Report 5942586-1 (Version None)
Quarter: 2008Q4

REPORT INFORMATION
  Report Type: 
  Country: None (occurrence: None)
  Receive Date: 20081103
  Receipt Date: 20081017
  Transmission Date: 20090506
  Serious: Yes (Hospitalization)
  Sender: FDA-Public Use
  Company Number: 20446

PATIENT
  Age: 63 Year
  Sex: Female

DRUGS (1)
  1. ACYCLOVIR [Suspect]
     Dates: start: 20080320, end: 20080321

REACTIONS (3)
  - BULLOUS IMPETIGO [None]
  - SOFT TISSUE NECROSIS [None]
  - WRONG TECHNIQUE IN DRUG USAGE PROCESS [None]
